FAERS Safety Report 5593251-4 (Version None)
Quarter: 2008Q1

REPORT INFORMATION
  Report Type: 
  Country: None (occurrence: None)
  Receive Date: 20080116
  Receipt Date: 20071127
  Transmission Date: 20080703
  Serious: Yes (Other)
  Sender: FDA-Public Use
  Company Number: US-BAYER-200810221GPV

PATIENT
  Age: 20 Month
  Sex: Male

DRUGS (4)
  1. ASPIRIN [Suspect]
     Indication: PYREXIA
     Route: 065
  2. ASPIRIN [Suspect]
     Route: 065
  3. NITROUS OXIDE [Concomitant]
     Indication: ANAESTHESIA
  4. TETRACYCLINE [Concomitant]
     Indication: PYREXIA

REACTIONS (2)
  - ANAEMIA [None]
  - CHROMATURIA [None]
